FAERS Safety Report 22119839 (Version 1)
Quarter: 2023Q1

REPORT INFORMATION
  Report Type: Spontaneous
  Country: US (occurrence: None)
  Receive Date: 20230321
  Receipt Date: 20230321
  Transmission Date: 20230418
  Serious: No
  Sender: FDA-Public Use
  Company Number: US-ROCHE-3103088

PATIENT
  Age: 83 Year
  Sex: Male

DRUGS (1)
  1. ERIVEDGE [Suspect]
     Active Substance: VISMODEGIB
     Indication: Skin cancer
     Dosage: ONGOING: YES
     Route: 048
     Dates: start: 20220422

REACTIONS (2)
  - Taste disorder [Unknown]
  - Ageusia [Unknown]

NARRATIVE: CASE EVENT DATE: 20220501
